FAERS Safety Report 14857550 (Version 2)
Quarter: 2018Q3

REPORT INFORMATION
  Report Type: Spontaneous
  Country: US (occurrence: US)
  Receive Date: 20180508
  Receipt Date: 20180807
  Transmission Date: 20181010
  Serious: No
  Sender: FDA-Public Use
  Company Number: US-RADIUS HEALTH INC.-2018US000516

PATIENT
  Sex: Female

DRUGS (2)
  1. TYMLOS [Suspect]
     Active Substance: ABALOPARATIDE
     Indication: OSTEOPOROSIS POSTMENOPAUSAL
     Dosage: 70 MCG, DAILY
  2. TYMLOS [Suspect]
     Active Substance: ABALOPARATIDE
     Dosage: HALF DOSES, TWICE A DAY
     Route: 058

REACTIONS (3)
  - Off label use [Unknown]
  - Inappropriate schedule of drug administration [Not Recovered/Not Resolved]
  - Adverse event [Unknown]
